FAERS Safety Report 16853071 (Version 2)
Quarter: 2019Q4

REPORT INFORMATION
  Report Type: Report from Study
  Country: US (occurrence: US)
  Receive Date: 20190925
  Receipt Date: 20191029
  Transmission Date: 20200122
  Serious: Yes (Hospitalization)
  Sender: FDA-Public Use
  Company Number: US-JNJFOC-20190723604

PATIENT
  Age: 75 Year
  Sex: Male

DRUGS (14)
  1. IMBRUVICA [Suspect]
     Active Substance: IBRUTINIB
     Route: 048
     Dates: start: 20190717
  2. PILOCARPINE HCL [Concomitant]
     Active Substance: PILOCARPINE HYDROCHLORIDE
  3. PANTOPRAZOLE SODIUM. [Concomitant]
     Active Substance: PANTOPRAZOLE SODIUM
  4. ACETYLSALICYLIC ACID [Concomitant]
     Active Substance: ASPIRIN
  5. OXYCODONE HYDROCHLORIDE. [Concomitant]
     Active Substance: OXYCODONE HYDROCHLORIDE
  6. FUROSEMIDE. [Concomitant]
     Active Substance: FUROSEMIDE
  7. METFORMIN HCL [Concomitant]
     Active Substance: METFORMIN HYDROCHLORIDE
  8. LOSARTAN POTASSIUM. [Concomitant]
     Active Substance: LOSARTAN POTASSIUM
  9. POTASSIUM [Concomitant]
     Active Substance: POTASSIUM
  10. LIPITOR [Concomitant]
     Active Substance: ATORVASTATIN CALCIUM
  11. IMBRUVICA [Suspect]
     Active Substance: IBRUTINIB
     Indication: WALDENSTROM^S MACROGLOBULINAEMIA
     Dosage: 420 MG, QD
     Route: 048
     Dates: start: 20190602
  12. ATENOLOL. [Concomitant]
     Active Substance: ATENOLOL
  13. GABAPENTIN. [Concomitant]
     Active Substance: GABAPENTIN
  14. LORAZEPAM. [Concomitant]
     Active Substance: LORAZEPAM

REACTIONS (8)
  - Tongue erythema [Recovering/Resolving]
  - Taste disorder [Unknown]
  - Nausea [Unknown]
  - Stomatitis [Unknown]
  - Oral candidiasis [Unknown]
  - Pneumonia [Unknown]
  - Ageusia [Unknown]
  - Eating disorder [Recovering/Resolving]

NARRATIVE: CASE EVENT DATE: 20190822
